FAERS Safety Report 6811336-9 (Version None)
Quarter: 2010Q2

REPORT INFORMATION
  Report Type: 
  Country: None (occurrence: None)
  Receive Date: 20100630
  Receipt Date: 20100623
  Transmission Date: 20101027
  Serious: Yes (Hospitalization, Other)
  Sender: FDA-Public Use
  Company Number: PT-MERCK-1006PRT00010

PATIENT
  Sex: Female

DRUGS (1)
  1. COSOPT [Suspect]
     Route: 047

REACTIONS (3)
  - ERYTHEMA [None]
  - ORAL MUCOSAL EXFOLIATION [None]
  - SKIN EXFOLIATION [None]
